FAERS Safety Report 4427754-2 (Version None)
Quarter: 2004Q3

REPORT INFORMATION
  Report Type: 
  Country: None (occurrence: None)
  Receive Date: 20040817
  Receipt Date: 20040805
  Transmission Date: 20050211
  Serious: Yes (Hospitalization)
  Sender: FDA-Public Use
  Company Number: IT-GLAXOSMITHKLINE-B0342143A

PATIENT
  Age: 83 Year
  Sex: Female

DRUGS (10)
  1. DIGOXIN [Suspect]
     Indication: ATRIAL FIBRILLATION
     Dosage: .13MG PER DAY
     Route: 048
     Dates: start: 20040701, end: 20040722
  2. ALLOPURINOL [Concomitant]
     Dosage: 300MG PER DAY
  3. AMIODARONE HYDROCHLORIDE [Concomitant]
     Dosage: 1U PER DAY
     Route: 048
  4. CARVEDILOL [Concomitant]
     Indication: ESSENTIAL HYPERTENSION
     Dosage: 3MG PER DAY
     Route: 048
  5. FRUSEMIDE [Concomitant]
     Indication: ESSENTIAL HYPERTENSION
     Dosage: 125MG PER DAY
     Route: 048
  6. METFORMIN HCL [Concomitant]
     Dosage: 500MG TWICE PER DAY
     Route: 048
  7. PANTOPRAZOLE [Concomitant]
     Dosage: 20MG PER DAY
     Route: 048
  8. POTASSIUM CANRENOATE [Concomitant]
     Indication: ESSENTIAL HYPERTENSION
     Dosage: 100MG PER DAY
     Route: 048
  9. WARFARIN SODIUM [Concomitant]
  10. ZOLPIDEM TARTRATE [Concomitant]
     Dosage: 10MG PER DAY
     Route: 048

REACTIONS (2)
  - SYNCOPE [None]
  - THERAPEUTIC AGENT TOXICITY [None]
